FAERS Safety Report 11984371 (Version 1)
Quarter: 2016Q1

REPORT INFORMATION
  Report Type: Spontaneous
  Country: US (occurrence: US)
  Receive Date: 20160201
  Receipt Date: 20160201
  Transmission Date: 20160526
  Serious: No
  Sender: FDA-Public Use
  Company Number: US-KADMON PHARMACEUTICALS, LLC-KAD201509-003220

PATIENT
  Age: 46 Year
  Sex: Female
  Weight: 68.04 kg

DRUGS (8)
  1. TRAZODONE [Concomitant]
     Active Substance: TRAZODONE HYDROCHLORIDE
  2. PROMETHAZINE [Concomitant]
     Active Substance: PROMETHAZINE\PROMETHAZINE HYDROCHLORIDE
  3. NAPROXEN. [Concomitant]
     Active Substance: NAPROXEN
  4. RIBAVIRIN 200 MG TABLETS [Suspect]
     Active Substance: RIBAVIRIN
     Route: 048
     Dates: start: 20150906
  5. SOVALDI [Concomitant]
     Active Substance: SOFOSBUVIR
     Dates: start: 20150619
  6. RIBAVIRIN 200 MG TABLETS [Suspect]
     Active Substance: RIBAVIRIN
     Indication: HEPATITIS C
     Route: 048
     Dates: start: 20150619
  7. CLONAZEPAM. [Concomitant]
     Active Substance: CLONAZEPAM
  8. PROTONIX [Concomitant]
     Active Substance: PANTOPRAZOLE SODIUM

REACTIONS (15)
  - Photosensitivity reaction [Unknown]
  - Chills [Recovered/Resolved]
  - Headache [Unknown]
  - Chills [Unknown]
  - Photosensitivity reaction [Recovered/Resolved]
  - Urinary tract infection [Recovered/Resolved]
  - Insomnia [Unknown]
  - Fatigue [Recovered/Resolved]
  - Fatigue [Unknown]
  - Cold sweat [Unknown]
  - Cold sweat [Recovered/Resolved]
  - Headache [Recovered/Resolved]
  - Malaise [Unknown]
  - Pyrexia [Recovered/Resolved]
  - Pyrexia [Unknown]

NARRATIVE: CASE EVENT DATE: 2015
